FAERS Safety Report 17218756 (Version 3)
Quarter: 2020Q1

REPORT INFORMATION
  Report Type: Spontaneous
  Country: US (occurrence: US)
  Receive Date: 20191231
  Receipt Date: 20200304
  Transmission Date: 20200409
  Serious: No
  Sender: FDA-Public Use
  Company Number: US-VERTEX PHARMACEUTICALS-2019-013526

PATIENT
  Age: 30 Year
  Sex: Male
  Weight: 61 kg

DRUGS (1)
  1. TRIKAFTA [Suspect]
     Active Substance: ELEXACAFTOR\IVACAFTOR\TEZACAFTOR
     Indication: CYSTIC FIBROSIS
     Dosage: 2 ORANGE TABS IN THE AM AND 1 BLUE TAB IN THE PM
     Route: 048
     Dates: start: 20191213

REACTIONS (3)
  - Hepatic enzyme increased [Unknown]
  - Abdominal pain upper [Recovered/Resolved]
  - Productive cough [Unknown]

NARRATIVE: CASE EVENT DATE: 201912
